FAERS Safety Report 8860373 (Version 2)
Quarter: 2013Q1

REPORT INFORMATION
  Report Type: Spontaneous
  Country: US (occurrence: US)
  Receive Date: 20121025
  Receipt Date: 20130102
  Transmission Date: 20140127
  Serious: Yes (Hospitalization)
  Sender: FDA-Public Use
  Company Number: US-009507513-1210USA007478

PATIENT
  Age: 48 Year
  Sex: Male

DRUGS (4)
  1. INVANZ [Suspect]
     Indication: ARTHRITIS BACTERIAL
     Dosage: 1 G, ONCE
     Route: 042
     Dates: start: 20121010
  2. CELEBREX [Concomitant]
  3. CELEXA [Concomitant]
  4. OXYCOD [Concomitant]

REACTIONS (1)
  - Blood pressure increased [Recovering/Resolving]
